FAERS Safety Report 20028033 (Version 2)
Quarter: 2022Q1

REPORT INFORMATION
  Report Type: Report from Study
  Country: US (occurrence: US)
  Receive Date: 20211103
  Receipt Date: 20220214
  Transmission Date: 20220423
  Serious: Yes (Hospitalization, Other)
  Sender: FDA-Public Use
  Company Number: US-ABBVIE-21K-163-4141505-00

PATIENT
  Sex: Female

DRUGS (2)
  1. HUMIRA [Suspect]
     Active Substance: ADALIMUMAB
     Indication: Hidradenitis
     Dosage: CF
     Route: 058
  2. HUMIRA [Suspect]
     Active Substance: ADALIMUMAB
     Indication: Hidradenitis
     Route: 058

REACTIONS (13)
  - Cyst [Unknown]
  - Intracranial aneurysm [Unknown]
  - Seizure [Unknown]
  - Neoplasm malignant [Unknown]
  - Renal neoplasm [Unknown]
  - Uterine neoplasm [Unknown]
  - Device issue [Unknown]
  - Wound haemorrhage [Unknown]
  - Memory impairment [Unknown]
  - Skin discolouration [Unknown]
  - Unevaluable event [Unknown]
  - Hypersensitivity [Unknown]
  - Abscess [Unknown]

NARRATIVE: CASE EVENT DATE: 20210101
